FAERS Safety Report 19452920 (Version 1)
Quarter: 2021Q2

REPORT INFORMATION
  Report Type: Spontaneous
  Country: NL (occurrence: NL)
  Receive Date: 20210623
  Receipt Date: 20210623
  Transmission Date: 20210717
  Serious: Yes (Life-Threatening)
  Sender: FDA-Public Use
  Company Number: NL-ACCORD-229083

PATIENT
  Age: 78 Year
  Sex: Female
  Weight: 63 kg

DRUGS (11)
  1. CLOPIDOGREL [Suspect]
     Active Substance: CLOPIDOGREL BISULFATE
     Indication: ANTICOAGULANT THERAPY
     Dosage: 75 MG, 1 PER DAY 1 PIECE
     Dates: start: 20210331
  2. COVID?19 VACCINE NOS. [Suspect]
     Active Substance: COVID-19 VACCINE NOS
     Indication: COVID-19 IMMUNISATION
     Dates: start: 20210411
  3. HYDROCHLOROTHIAZIDE. [Concomitant]
     Active Substance: HYDROCHLOROTHIAZIDE
     Dosage: 1X PER DAG  22, 5 MG
  4. CALCIUM PANTOTHENATE/CHOLINE/CYANOCOBALAMIN/NICOTINAMIDE/PYRIDOXINE HYDROCHLORIDE/RIBOFLAVIN/THIAMIN [Concomitant]
     Dosage: 1 TO 3 DRAGEES P.DAY
  5. COLECALCIFEROL [Concomitant]
     Active Substance: CHOLECALCIFEROL
     Dosage: 1 X P DAG 50 MG
  6. METOPROLOL. [Concomitant]
     Active Substance: METOPROLOL
     Dosage: 1/2 X 25
  7. SIMVASTATIN. [Concomitant]
     Active Substance: SIMVASTATIN
     Dosage: FILMOMHULDE TABLET, 20 MG (MILLIGRAM)
  8. NADROPARIN [Suspect]
     Active Substance: NADROPARIN
     Indication: HIP SURGERY
     Dosage: 1X PER DAG 1SPUIT
     Dates: start: 20210331
  9. LITHIUM. [Concomitant]
     Active Substance: LITHIUM
     Dosage: 300MG P.DAG
  10. FISH OIL [Concomitant]
     Active Substance: FISH OIL
     Dosage: 2 CAPS PER DAG
  11. GLUCOSAMINE [Concomitant]
     Active Substance: GLUCOSAMINE
     Dosage: 1500 MG PER DAG

REACTIONS (1)
  - Transient ischaemic attack [Recovering/Resolving]

NARRATIVE: CASE EVENT DATE: 20210414
